FAERS Safety Report 21818770 (Version 2)
Quarter: 2023Q1

REPORT INFORMATION
  Report Type: Report from Study
  Country: US (occurrence: US)
  Receive Date: 20230104
  Receipt Date: 20230313
  Transmission Date: 20230417
  Serious: No
  Sender: FDA-Public Use
  Company Number: US-ABBVIE-4246965

PATIENT
  Sex: Female

DRUGS (2)
  1. HUMIRA [Suspect]
     Active Substance: ADALIMUMAB
     Indication: Hidradenitis
     Dosage: CITRATE FREE? FORM STRENGTH: 40MG
     Route: 058
     Dates: start: 20221009
  2. HUMIRA [Suspect]
     Active Substance: ADALIMUMAB
     Dosage: CITRATE FREE? FORM STRENGTH: 40MG
     Route: 058

REACTIONS (6)
  - Injection site swelling [Recovered/Resolved]
  - Drug ineffective [Not Recovered/Not Resolved]
  - Hidradenitis [Not Recovered/Not Resolved]
  - Injection site papule [Recovered/Resolved]
  - Injection site erythema [Recovered/Resolved]
  - Injection site bruising [Recovered/Resolved]
